FAERS Safety Report 9403168 (Version 9)
Quarter: 2014Q3

REPORT INFORMATION
  Report Type: Report from Study
  Country: AU (occurrence: AU)
  Receive Date: 20130716
  Receipt Date: 20140924
  Transmission Date: 20150326
  Serious: Yes (Hospitalization)
  Sender: FDA-Public Use
  Company Number: AU-GLAXOSMITHKLINE-B0908195A

PATIENT
  Age: 54 Year
  Sex: Female
  Weight: 66 kg

DRUGS (1)
  1. RETIGABINE [Suspect]
     Active Substance: EZOGABINE
     Indication: PARTIAL SEIZURES
     Dosage: 950MG PER DAY
     Route: 048
     Dates: start: 20100730

REACTIONS (6)
  - Ataxia [Recovered/Resolved]
  - Radius fracture [Recovered/Resolved with Sequelae]
  - Humerus fracture [Recovered/Resolved with Sequelae]
  - Dizziness [Recovered/Resolved]
  - Femoral neck fracture [Recovered/Resolved with Sequelae]
  - Fall [Recovered/Resolved]

NARRATIVE: CASE EVENT DATE: 20130704
